FAERS Safety Report 6002951-3 (Version None)
Quarter: 2008Q4

REPORT INFORMATION
  Report Type: 
  Country: None (occurrence: None)
  Receive Date: 20081215
  Receipt Date: 20080606
  Transmission Date: 20090506
  Serious: No
  Sender: FDA-Public Use
  Company Number: US-AMGEN-KDL285326

PATIENT
  Sex: Female

DRUGS (4)
  1. ENBREL [Suspect]
     Indication: PSORIATIC ARTHROPATHY
     Route: 058
     Dates: start: 20080523
  2. ENBREL [Suspect]
     Indication: PSORIASIS
  3. ENBREL [Suspect]
     Indication: OSTEOARTHRITIS
  4. SULFASALAZINE [Concomitant]
     Route: 048
     Dates: start: 19980101

REACTIONS (3)
  - FATIGUE [None]
  - INJECTION SITE PAIN [None]
  - PAIN [None]
